FAERS Safety Report 6767682-0 (Version None)
Quarter: 2010Q2

REPORT INFORMATION
  Report Type: 
  Country: None (occurrence: None)
  Receive Date: 20100608
  Receipt Date: 20100528
  Transmission Date: 20101027
  Serious: Yes (Hospitalization, Other)
  Sender: FDA-Public Use
  Company Number: AEIRL200800111

PATIENT
  Age: 43 Year
  Sex: Male
  Weight: 76 kg

DRUGS (3)
  1. PROLASTIN [Suspect]
     Indication: ALPHA-1 ANTI-TRYPSIN DEFICIENCY
     Dosage: 10 GM; Q2W; IV
     Route: 042
     Dates: start: 20060101, end: 20100201
  2. SYMBICORT [Concomitant]
  3. SPIRIVA [Concomitant]

REACTIONS (13)
  - ANXIETY [None]
  - BLOOD PRESSURE DECREASED [None]
  - CHEST DISCOMFORT [None]
  - CHILLS [None]
  - COUGH [None]
  - DIZZINESS [None]
  - DYSPNOEA [None]
  - NAUSEA [None]
  - OEDEMA [None]
  - RASH [None]
  - SWOLLEN TONGUE [None]
  - TACHYPNOEA [None]
  - WHEEZING [None]
